FAERS Safety Report 6811354-0 (Version None)
Quarter: 2010Q2

REPORT INFORMATION
  Report Type: 
  Country: None (occurrence: None)
  Receive Date: 20100630
  Receipt Date: 20100204
  Transmission Date: 20101027
  Serious: No
  Sender: FDA-Public Use
  Company Number: US-AMGEN-KDL391596

PATIENT
  Sex: Female
  Weight: 33.1 kg

DRUGS (7)
  1. PROCRIT [Suspect]
     Indication: RENAL FAILURE CHRONIC
     Route: 058
  2. LANTUS [Concomitant]
     Dates: start: 19780101
  3. HUMALOG [Concomitant]
     Dates: start: 19780101
  4. HUMULIN R [Concomitant]
     Route: 058
     Dates: start: 19780101
  5. VITAMIN B-12 [Concomitant]
     Route: 030
  6. LIPITOR [Concomitant]
     Route: 048
  7. NEXIUM [Concomitant]
     Route: 048

REACTIONS (3)
  - INJECTION SITE HAEMATOMA [None]
  - INJECTION SITE NODULE [None]
  - INJECTION SITE WARMTH [None]
